FAERS Safety Report 10194374 (Version 2)
Quarter: 2014Q2

REPORT INFORMATION
  Report Type: Spontaneous
  Country: BR (occurrence: BR)
  Receive Date: 20140526
  Receipt Date: 20140526
  Transmission Date: 20141212
  Serious: Yes (Hospitalization)
  Sender: FDA-Public Use
  Company Number: BR-BIOGENIDEC-2014BI003896

PATIENT
  Age: 47 Year
  Sex: Male

DRUGS (11)
  1. AVONEX [Suspect]
     Indication: MULTIPLE SCLEROSIS
     Route: 030
     Dates: start: 20131218
  2. GABAPENTIN [Concomitant]
  3. PARACETAMOL [Concomitant]
     Indication: MIGRAINE
  4. BEZAFIBRATE [Concomitant]
     Indication: HYPERCHOLESTEROLAEMIA
  5. ATORVASTATIN [Concomitant]
  6. ATENOLOL [Concomitant]
  7. FOLIC ACID [Concomitant]
  8. VITAMIN B COMPLEX [Concomitant]
  9. CARBAMAZEPINE [Concomitant]
  10. AMANTADINE [Concomitant]
  11. CAPTOPRIL [Concomitant]

REACTIONS (9)
  - Multiple sclerosis relapse [Not Recovered/Not Resolved]
  - Feeling cold [Recovered/Resolved]
  - Pyrexia [Recovered/Resolved]
  - Pain [Recovered/Resolved]
  - Heart rate decreased [Not Recovered/Not Resolved]
  - Decreased immune responsiveness [Not Recovered/Not Resolved]
  - Nervousness [Unknown]
  - Memory impairment [Unknown]
  - Pain in extremity [Unknown]
